FAERS Safety Report 6760606-1 (Version None)
Quarter: 2010Q2

REPORT INFORMATION
  Report Type: 
  Country: None (occurrence: None)
  Receive Date: 20100608
  Receipt Date: 20100527
  Transmission Date: 20101027
  Serious: Yes (Other)
  Sender: FDA-Public Use
  Company Number: US-PFIZER INC-2010067142

PATIENT
  Age: 76 Year
  Sex: Male

DRUGS (2)
  1. CHANTIX [Suspect]
     Indication: SMOKING CESSATION THERAPY
     Dosage: 0.5 MG/DAY
     Route: 048
     Dates: start: 20100501, end: 20100501
  2. CHANTIX [Suspect]
     Dosage: 1 MG, 2X/DAY
     Route: 048
     Dates: start: 20100501, end: 20100501

REACTIONS (6)
  - GAIT DISTURBANCE [None]
  - HYPOPHAGIA [None]
  - IMPAIRED DRIVING ABILITY [None]
  - MALAISE [None]
  - VOMITING [None]
  - WEIGHT DECREASED [None]
